FAERS Safety Report 13670823 (Version 1)
Quarter: 2017Q2

REPORT INFORMATION
  Report Type: Report from Study
  Country: US (occurrence: US)
  Receive Date: 20170620
  Receipt Date: 20170620
  Transmission Date: 20170830
  Serious: Yes (Other)
  Sender: FDA-Public Use
  Company Number: PHEH2017US018056

PATIENT
  Sex: Female

DRUGS (1)
  1. COSENTYX [Suspect]
     Active Substance: SECUKINUMAB
     Indication: PRODUCT USED FOR UNKNOWN INDICATION
     Dosage: UNK, Q2W (EVERY 2 WEEKS)
     Route: 065

REACTIONS (7)
  - Malaise [Unknown]
  - Injection site erythema [Unknown]
  - Rash [Unknown]
  - Respiratory tract infection [Unknown]
  - Viral infection [Unknown]
  - Sinusitis [Unknown]
  - Inappropriate schedule of drug administration [Unknown]
